FAERS Safety Report 21722784 (Version 3)
Quarter: 2023Q1

REPORT INFORMATION
  Report Type: Report from Study
  Country: US (occurrence: US)
  Receive Date: 20221213
  Receipt Date: 20230317
  Transmission Date: 20230418
  Serious: No
  Sender: FDA-Public Use
  Company Number: US-ABBVIE-4234145

PATIENT
  Age: 72 Year
  Sex: Female

DRUGS (1)
  1. VENCLEXTA [Suspect]
     Active Substance: VENETOCLAX
     Indication: Acute myeloid leukaemia
     Dosage: TOOK 4 TABLETS BY MOUTH ONCE DAILY WITH FOOD AND A FULL GLASS OF WATER, KEEP IN ORIGINAL BOTTLE?S...
     Route: 048
     Dates: start: 20211017

REACTIONS (6)
  - Dental caries [Unknown]
  - Insomnia [Recovering/Resolving]
  - Diabetic neuropathy [Recovering/Resolving]
  - Fatigue [Recovering/Resolving]
  - Gingival recession [Unknown]
  - Tooth abscess [Unknown]

NARRATIVE: CASE EVENT DATE: 20221202
